FAERS Safety Report 6928222-6 (Version None)
Quarter: 2010Q3

REPORT INFORMATION
  Report Type: 
  Country: None (occurrence: None)
  Receive Date: 20100806
  Receipt Date: 20100518
  Transmission Date: 20110219
  Serious: Yes (Other)
  Sender: FDA-Public Use
  Company Number: AUR-APL-2010-01404

PATIENT
  Age: 38 Year
  Sex: Female

DRUGS (8)
  1. RISPERIDONE [Suspect]
  2. GEODON [Suspect]
     Indication: SCHIZOAFFECTIVE DISORDER BIPOLAR TYPE
     Dates: end: 20100101
  3. TRAMADOL HCL [Suspect]
     Indication: BACK PAIN
     Dosage: 50 MG, TID,
  4. MOBAN [Suspect]
     Indication: PSYCHOTIC DISORDER
  5. ZYPREXA [Suspect]
     Indication: PSYCHOTIC DISORDER
  6. FLEXERIL [Suspect]
     Indication: BACK PAIN
     Dosage: 5MG, TID,
  7. CRESTOR [Concomitant]
  8. IBUPROFEN [Concomitant]

REACTIONS (5)
  - DRUG INEFFECTIVE [None]
  - HEART RATE INCREASED [None]
  - MENTAL DISORDER [None]
  - SOMNOLENCE [None]
  - SUICIDAL IDEATION [None]
